FAERS Safety Report 4693334-7 (Version None)
Quarter: 2005Q2

REPORT INFORMATION
  Report Type: 
  Country: None (occurrence: None)
  Receive Date: 20050615
  Receipt Date: 20050525
  Transmission Date: 20051028
  Serious: Yes (Hospitalization, Other)
  Sender: FDA-Public Use
  Company Number: US_0411107617

PATIENT
  Age: 46 Year
  Sex: Male

DRUGS (8)
  1. ZYPREXA-ORA (OLANZAPINE) (OLANZAPINE) [Suspect]
     Indication: DEPRESSION
     Dosage: 15 MG
     Dates: start: 20011201
  2. DURAGESIC (FENTANYL  00174601/) [Concomitant]
  3. LORTAB [Concomitant]
  4. STOOL SOFTENER (DOCUSATE SODUM) [Concomitant]
  5. QYETUAOUBE [Concomitant]
  6. RUSOERUDIBE [Concomitant]
  7. CITALOPRAM HYDROBROMIDE [Concomitant]
  8. MIRTAZAPINE [Concomitant]

REACTIONS (7)
  - BLOOD CHOLESTEROL ABNORMAL [None]
  - CHEST WALL PAIN [None]
  - HYPERTENSION [None]
  - MYOCARDIAL INFARCTION [None]
  - PANCREATITIS [None]
  - PNEUMONIA [None]
  - VISION BLURRED [None]
